FAERS Safety Report 13383643 (Version 1)
Quarter: 2017Q1

REPORT INFORMATION
  Report Type: Spontaneous
  Country: FR (occurrence: FR)
  Receive Date: 20170329
  Receipt Date: 20170329
  Transmission Date: 20170429
  Serious: Yes (Life-Threatening, Hospitalization, Disabling)
  Sender: FDA-Public Use
  Company Number: FR-JNJFOC-20170327854

PATIENT
  Age: 29 Year
  Sex: Female

DRUGS (4)
  1. REMICADE [Suspect]
     Active Substance: INFLIXIMAB
     Indication: CROHN^S DISEASE
     Route: 042
     Dates: start: 201101, end: 201409
  2. HUMIRA [Suspect]
     Active Substance: ADALIMUMAB
     Indication: CROHN^S DISEASE
     Route: 042
     Dates: start: 201409, end: 201504
  3. REMICADE [Suspect]
     Active Substance: INFLIXIMAB
     Indication: CROHN^S DISEASE
     Route: 042
     Dates: start: 201504, end: 201507
  4. HUMIRA [Suspect]
     Active Substance: ADALIMUMAB
     Indication: CROHN^S DISEASE
     Dosage: 5.7143 MG
     Route: 042
     Dates: start: 201509, end: 201609

REACTIONS (5)
  - Ischaemic cerebral infarction [Not Recovered/Not Resolved]
  - Pulmonary embolism [Recovering/Resolving]
  - Myelitis [Not Recovered/Not Resolved]
  - Cardio-respiratory arrest [Recovered/Resolved]
  - Brain stem ischaemia [Not Recovered/Not Resolved]

NARRATIVE: CASE EVENT DATE: 20160905
